FAERS Safety Report 18800072 (Version 1)
Quarter: 2021Q1

REPORT INFORMATION
  Report Type: Spontaneous
  Country: US (occurrence: US)
  Receive Date: 20210128
  Receipt Date: 20210128
  Transmission Date: 20210419
  Serious: Yes (Other)
  Sender: FDA-Public Use
  Company Number: None

PATIENT
  Age: 28 Year
  Sex: Male
  Weight: 70.65 kg

DRUGS (3)
  1. CREST PRO?HEALTH MULTI?PROTECTION REFRESHING CLEAN MINT [Suspect]
     Active Substance: CETYLPYRIDINIUM CHLORIDE
     Indication: OROPHARYNGEAL PLAQUE
     Route: 048
     Dates: start: 20210114, end: 20210116
  2. PSYLLIUM HUSK. [Concomitant]
     Active Substance: PSYLLIUM HUSK
  3. CREST PRO?HEALTH MULTI?PROTECTION REFRESHING CLEAN MINT [Suspect]
     Active Substance: CETYLPYRIDINIUM CHLORIDE
     Indication: GINGIVITIS
     Route: 048
     Dates: start: 20210114, end: 20210116

REACTIONS (2)
  - Tongue rough [None]
  - Ageusia [None]

NARRATIVE: CASE EVENT DATE: 20210114
